FAERS Safety Report 6792740-4 (Version None)
Quarter: 2010Q2

REPORT INFORMATION
  Report Type: 
  Country: None (occurrence: None)
  Receive Date: 20100624
  Receipt Date: 20081021
  Transmission Date: 20101027
  Serious: Yes (Life-Threatening, Other)
  Sender: FDA-Public Use
  Company Number: US-PFIZER INC-2008077055

PATIENT
  Age: 65 Year
  Sex: Male
  Weight: 59 kg

DRUGS (1)
  1. GEODON [Suspect]
     Indication: AGITATION
     Route: 030

REACTIONS (3)
  - AGITATION [None]
  - HEPATIC ENZYME ABNORMAL [None]
  - NEUROLEPTIC MALIGNANT SYNDROME [None]
